FAERS Safety Report 11240526 (Version 10)
Quarter: 2016Q1

REPORT INFORMATION
  Report Type: Report from Study
  Country: BR (occurrence: BR)
  Receive Date: 20150706
  Receipt Date: 20160329
  Transmission Date: 20160525
  Serious: Yes (Hospitalization, Other)
  Sender: FDA-Public Use
  Company Number: PHHY2015BR037956

PATIENT
  Age: 43 Year
  Sex: Female
  Weight: 85 kg

DRUGS (11)
  1. GILENYA [Suspect]
     Active Substance: FINGOLIMOD HYDROCHLORIDE
     Indication: MULTIPLE SCLEROSIS
     Dosage: 0.5 MG, QD
     Route: 048
     Dates: start: 20141103
  2. RECONTER [Concomitant]
     Active Substance: ESCITALOPRAM OXALATE
     Indication: PAIN
     Dosage: 1 DF (10 MG), QD/ STARTED 1MONTH AGO AND END OF 20 DAYS
     Route: 048
  3. AMITRIPTYLINE [Concomitant]
     Active Substance: AMITRIPTYLINE
     Indication: HEADACHE
  4. GILENYA [Suspect]
     Active Substance: FINGOLIMOD HYDROCHLORIDE
     Dosage: 0.5 MG, QD
     Route: 048
     Dates: start: 201502
  5. FLUOXETINE [Concomitant]
     Active Substance: FLUOXETINE HYDROCHLORIDE
     Indication: ANXIETY
     Dosage: 2 DF, QD
     Route: 048
  6. RIVOTRIL [Concomitant]
     Active Substance: CLONAZEPAM
     Indication: ANXIETY
     Dosage: 3 DF (2 MG), QD
     Route: 048
     Dates: start: 201410
  7. OMEPRAZOLE. [Concomitant]
     Active Substance: OMEPRAZOLE
     Indication: ABDOMINAL DISCOMFORT
     Dosage: 20 MG, QD
     Route: 048
     Dates: start: 2014
  8. RECONTER [Concomitant]
     Active Substance: ESCITALOPRAM OXALATE
     Indication: VOMITING
  9. ARISTAB [Concomitant]
     Indication: SEDATIVE THERAPY
     Dosage: 1 DF, QD/ STARTED LESS THAN 20 DAYS AGO
     Route: 048
  10. AMITRIPTYLINE [Concomitant]
     Active Substance: AMITRIPTYLINE
     Indication: SLEEP DISORDER
     Dosage: 3 DF (25 MG), QD, 3 MONTHS AGO
     Route: 048
     Dates: start: 201412
  11. AMITRIPTYLINE [Concomitant]
     Active Substance: AMITRIPTYLINE
     Indication: ANXIETY

REACTIONS (35)
  - Balance disorder [Recovered/Resolved]
  - Visual acuity reduced [Recovered/Resolved with Sequelae]
  - Visual acuity reduced [Unknown]
  - Hypoaesthesia [Not Recovered/Not Resolved]
  - Vomiting [Not Recovered/Not Resolved]
  - Fatigue [Not Recovered/Not Resolved]
  - Ocular discomfort [Recovered/Resolved with Sequelae]
  - Thirst [Not Recovered/Not Resolved]
  - Alopecia [Not Recovered/Not Resolved]
  - Nausea [Not Recovered/Not Resolved]
  - Multiple sclerosis relapse [Recovered/Resolved]
  - Eye pain [Recovered/Resolved with Sequelae]
  - Amnesia [Not Recovered/Not Resolved]
  - Diarrhoea [Recovered/Resolved]
  - Dysstasia [Unknown]
  - Hypothyroidism [Recovering/Resolving]
  - Vision blurred [Not Recovered/Not Resolved]
  - Irritability [Not Recovered/Not Resolved]
  - Paraesthesia [Unknown]
  - Weight increased [Recovering/Resolving]
  - Vomiting [Recovered/Resolved]
  - Arthralgia [Unknown]
  - Anxiety [Recovering/Resolving]
  - Dizziness [Recovered/Resolved]
  - Multiple sclerosis relapse [Unknown]
  - Memory impairment [Unknown]
  - Malaise [Not Recovered/Not Resolved]
  - Headache [Recovering/Resolving]
  - Peripheral swelling [Unknown]
  - Generalised oedema [Recovering/Resolving]
  - Diarrhoea [Not Recovered/Not Resolved]
  - Paraesthesia [Recovered/Resolved]
  - Dyskinesia [Recovered/Resolved]
  - Gait disturbance [Unknown]
  - Dry mouth [Not Recovered/Not Resolved]

NARRATIVE: CASE EVENT DATE: 201412
